FAERS Safety Report 5614558-8 (Version None)
Quarter: 2008Q1

REPORT INFORMATION
  Report Type: 
  Country: None (occurrence: None)
  Receive Date: 20080205
  Receipt Date: 20080201
  Transmission Date: 20080703
  Serious: Yes (Hospitalization)
  Sender: FDA-Public Use
  Company Number: IT-BOEHRINGER INGELHEIM GMBH, GERMANY-2007-IT-00412IT

PATIENT
  Sex: Male

DRUGS (1)
  1. MICARDIS HCT [Suspect]
     Indication: HYPERTENSION
     Route: 048
     Dates: start: 20070921, end: 20070924

REACTIONS (3)
  - ANAEMIA MEGALOBLASTIC [None]
  - ASTHENIA [None]
  - VITAMIN B12 DEFICIENCY [None]
